FAERS Safety Report 15742333 (Version 1)
Quarter: 2018Q4

REPORT INFORMATION
  Report Type: Spontaneous
  Country: US (occurrence: US)
  Receive Date: 20181219
  Receipt Date: 20181219
  Transmission Date: 20190205
  Serious: Yes (Hospitalization)
  Sender: FDA-Public Use
  Company Number: None

PATIENT
  Age: 29 Year
  Sex: Female
  Weight: 54 kg

DRUGS (1)
  1. METRONIDAZOLE. [Suspect]
     Active Substance: METRONIDAZOLE
     Indication: BACTERIAL VAGINOSIS
     Dosage: ?          QUANTITY:14 TABLET(S);?
     Route: 048
     Dates: start: 20181217, end: 20181219

REACTIONS (4)
  - Palpitations [None]
  - Flushing [None]
  - Nausea [None]
  - Headache [None]

NARRATIVE: CASE EVENT DATE: 20181219
